FAERS Safety Report 7252896-6 (Version None)
Quarter: 2011Q1

REPORT INFORMATION
  Report Type: 
  Country: None (occurrence: None)
  Receive Date: 20110129
  Receipt Date: 20100329
  Transmission Date: 20110831
  Serious: No
  Sender: FDA-Public Use
  Company Number: US-ABBOTT-10P-163-0635303-00

PATIENT
  Sex: Female
  Weight: 45.854 kg

DRUGS (1)
  1. HUMIRA [Suspect]
     Indication: CROHN'S DISEASE
     Dosage: DAY 1
     Dates: start: 20100326

REACTIONS (3)
  - FEELING ABNORMAL [None]
  - INJECTION SITE PAIN [None]
  - CHEST DISCOMFORT [None]
